FAERS Safety Report 9449651 (Version 2)
Quarter: 2013Q3

REPORT INFORMATION
  Report Type: Spontaneous
  Country: US (occurrence: US)
  Receive Date: 20130809
  Receipt Date: 20130924
  Transmission Date: 20140515
  Serious: No
  Sender: FDA-Public Use
  Company Number: US-PFIZER INC-2013231527

PATIENT
  Age: 74 Year
  Sex: Female
  Weight: 58.96 kg

DRUGS (7)
  1. LYRICA [Suspect]
     Indication: PAIN
     Dosage: 75 MG, SINGLE
     Route: 048
     Dates: start: 20130731, end: 20130731
  2. LYRICA [Suspect]
     Indication: HERPES ZOSTER
  3. LYRICA [Suspect]
     Indication: POST HERPETIC NEURALGIA
  4. XANAX [Suspect]
     Indication: SLEEP DISORDER
     Dosage: 0.5 MG, 1X/DAY
  5. XANAX [Suspect]
     Indication: ABDOMINAL DISCOMFORT
  6. ADVIL [Concomitant]
     Indication: PAIN
     Dosage: UNK, 1X/DAY
  7. ADVIL [Concomitant]
     Indication: HERPES ZOSTER

REACTIONS (2)
  - Feeling drunk [Recovered/Resolved]
  - Off label use [Unknown]
